FAERS Safety Report 4752569-5 (Version None)
Quarter: 2005Q3

REPORT INFORMATION
  Report Type: 
  Country: None (occurrence: None)
  Receive Date: 20050824
  Receipt Date: 20050804
  Transmission Date: 20060218
  Serious: Yes (Other)
  Sender: FDA-Public Use
  Company Number: US_010770511

PATIENT
  Age: 71 Year
  Sex: Female
  Weight: 91 kg

DRUGS (3)
  1. HUMALOG [Suspect]
     Indication: DIABETES MELLITUS
     Dosage: 40 U DAY
     Dates: start: 20010315
  2. HUMULIN N [Suspect]
     Indication: DIABETES MELLITUS
     Dosage: 10 U/1 IN THE MORNING
     Dates: start: 20010315, end: 20050101
  3. LANTUS [Concomitant]

REACTIONS (13)
  - BLOOD GLUCOSE DECREASED [None]
  - BLOOD GLUCOSE INCREASED [None]
  - BODY HEIGHT DECREASED [None]
  - CARPAL TUNNEL SYNDROME [None]
  - CONDITION AGGRAVATED [None]
  - FALL [None]
  - HYPOACUSIS [None]
  - INJECTION SITE HAEMORRHAGE [None]
  - ORTHOPEDIC PROCEDURE [None]
  - PERONEAL NERVE PALSY [None]
  - PHARMACEUTICAL PRODUCT COMPLAINT [None]
  - SHOULDER ARTHROPLASTY [None]
  - TREMOR [None]
